FAERS Safety Report 13077072 (Version 2)
Quarter: 2017Q1

REPORT INFORMATION
  Report Type: Spontaneous
  Country: US (occurrence: US)
  Receive Date: 20161230
  Receipt Date: 20170201
  Transmission Date: 20170428
  Serious: No
  Sender: FDA-Public Use
  Company Number: US-ASTRAZENECA-2016SF34502

PATIENT
  Sex: Female

DRUGS (1)
  1. SYMBICORT [Suspect]
     Active Substance: BUDESONIDE\FORMOTEROL FUMARATE DIHYDRATE
     Dosage: DOSE 160 MCG/4.5 MCG, FREQUENCY: UNKNOWN UNKNOWN
     Route: 055

REACTIONS (7)
  - Off label use [Unknown]
  - Intentional product misuse [Unknown]
  - Anosmia [Unknown]
  - Product use issue [Unknown]
  - Malaise [Not Recovered/Not Resolved]
  - Ageusia [Unknown]
  - Device malfunction [Unknown]
